FAERS Safety Report 15273976 (Version 1)
Quarter: 2018Q3

REPORT INFORMATION
  Report Type: Spontaneous
  Country: PL (occurrence: PL)
  Receive Date: 20180814
  Receipt Date: 20180814
  Transmission Date: 20181010
  Serious: Yes (Other)
  Sender: FDA-Public Use
  Company Number: PL-MERCK KGAA-2053664

PATIENT
  Age: 29 Year
  Sex: Female

DRUGS (1)
  1. NOVOTHYROX [Suspect]
     Active Substance: LEVOTHYROXINE SODIUM
     Indication: AUTOIMMUNE THYROIDITIS

REACTIONS (3)
  - Abortion spontaneous [Recovered/Resolved]
  - Hyperprolactinaemia [Recovered/Resolved]
  - Maternal exposure during pregnancy [Recovering/Resolving]

NARRATIVE: CASE EVENT DATE: 2018
